FAERS Safety Report 5525524-5 (Version None)
Quarter: 2007Q4

REPORT INFORMATION
  Report Type: 
  Country: None (occurrence: None)
  Receive Date: 20071126
  Receipt Date: 20071120
  Transmission Date: 20080405
  Serious: Yes (Other)
  Sender: FDA-Public Use
  Company Number: A0695406A

PATIENT
  Age: 28 Year
  Sex: Female

DRUGS (2)
  1. VALTREX [Suspect]
     Indication: GENITAL HERPES
     Route: 048
     Dates: start: 20041101, end: 20041101
  2. NO CONCURRENT MEDICATION [Concomitant]

REACTIONS (6)
  - ABDOMINAL PAIN UPPER [None]
  - BILIRUBIN URINE [None]
  - EATING DISORDER [None]
  - GALLBLADDER DISORDER [None]
  - HEPATIC FUNCTION ABNORMAL [None]
  - JAUNDICE [None]
